FAERS Safety Report 7559017-0 (Version None)
Quarter: 2011Q2

REPORT INFORMATION
  Report Type: 
  Country: None (occurrence: None)
  Receive Date: 20110621
  Receipt Date: 20110616
  Transmission Date: 20111010
  Serious: No
  Sender: FDA-Public Use
  Company Number: US-PFIZER INC-2011133428

PATIENT
  Sex: Male

DRUGS (11)
  1. LORAZEPAM [Concomitant]
     Indication: ANXIETY
     Dosage: 2 MG, DAILY
     Route: 048
  2. MIRTAZAPINE [Concomitant]
     Indication: SLEEP DISORDER
     Dosage: 7.5 MG, DAILY
     Route: 048
  3. ATENOLOL AND CHLORTHALIDONE [Concomitant]
     Dosage: 50/25MG, DAILY
     Route: 048
  4. ARTANE [Concomitant]
     Dosage: 1 MG, 2X/DAY
     Route: 048
  5. BUPROPION [Concomitant]
     Indication: DEPRESSION
     Dosage: 200 MG, 2X/DAY
     Route: 048
  6. CELLCEPT [Concomitant]
     Dosage: 1000 MG IN THE MORNING, 1500 MG AT NIGHT
     Route: 048
  7. BACLOFEN [Concomitant]
     Dosage: 20 MG, 4X/DAY
     Route: 048
  8. COPAXONE [Concomitant]
     Indication: MULTIPLE SCLEROSIS
     Dosage: 20 MG, DAILY
  9. CLONIDINE [Concomitant]
     Dosage: 0.1 MG, DAILY
     Route: 048
  10. CHANTIX [Suspect]
     Indication: SMOKING CESSATION THERAPY
     Dosage: UNK
     Route: 048
     Dates: start: 20070101
  11. ACYCLOVIR [Concomitant]
     Dosage: 400 MG, 2X/DAY
     Route: 048

REACTIONS (1)
  - DRUG INEFFECTIVE [None]
